FAERS Safety Report 7505260-6 (Version None)
Quarter: 2011Q2

REPORT INFORMATION
  Report Type: 
  Country: None (occurrence: None)
  Receive Date: 20110526
  Receipt Date: 20110524
  Transmission Date: 20111010
  Serious: No
  Sender: FDA-Public Use
  Company Number: US-PFIZER INC-2011112468

PATIENT
  Sex: Male
  Weight: 91 kg

DRUGS (10)
  1. BUSPAR [Concomitant]
     Dosage: UNK
  2. TEGRETOL [Concomitant]
     Dosage: UNK
  3. CHANTIX [Suspect]
     Indication: SMOKING CESSATION THERAPY
     Dosage: 0.5 MG, DAILY
     Route: 048
     Dates: start: 20110401, end: 20110401
  4. CHANTIX [Suspect]
     Dosage: 1 MG, 2X/DAY
     Dates: start: 20110401, end: 20110428
  5. TOPAMAX [Concomitant]
     Dosage: UNK
  6. RISPERDAL [Concomitant]
     Dosage: UNK
  7. KEPPRA [Concomitant]
     Dosage: UNK
  8. EFFEXOR [Concomitant]
     Dosage: UNK
  9. DDAVP [Concomitant]
     Dosage: UNK
  10. PROZAC [Concomitant]
     Dosage: UNK

REACTIONS (2)
  - ABNORMAL DREAMS [None]
  - FLASHBACK [None]
